FAERS Safety Report 5469449-2 (Version None)
Quarter: 2007Q3

REPORT INFORMATION
  Report Type: 
  Country: None (occurrence: None)
  Receive Date: 20070924
  Receipt Date: 20070910
  Transmission Date: 20080115
  Serious: Yes (Hospitalization)
  Sender: FDA-Public Use
  Company Number: 161110ISR

PATIENT
  Age: 86 Year
  Sex: Male

DRUGS (8)
  1. AZILECT [Suspect]
     Indication: PARKINSON'S DISEASE
     Dosage: 1 MG (1 MG, 1 IN 1 D) ORAL
     Route: 048
     Dates: start: 20070220, end: 20070608
  2. ACETYLSALICYLIC ACID [Concomitant]
  3. VERAPAMIL HYDROCHLORIDE [Concomitant]
  4. LISINOPRIL [Concomitant]
  5. DOXEPIN HCL [Concomitant]
  6. LEVODOPA [Concomitant]
  7. MADOPAR [Concomitant]
  8. ROPINIROLE HCL [Concomitant]

REACTIONS (4)
  - CONDITION AGGRAVATED [None]
  - FALL [None]
  - INAPPROPRIATE ANTIDIURETIC HORMONE SECRETION [None]
  - PARKINSON'S DISEASE [None]
